FAERS Safety Report 8923503 (Version 2)
Quarter: 2013Q1

REPORT INFORMATION
  Report Type: Report from Study
  Country: JP (occurrence: JP)
  Receive Date: 20121123
  Receipt Date: 20130129
  Transmission Date: 20140127
  Serious: Yes (Other)
  Sender: FDA-Public Use
  Company Number: JP-009507513-1211JPN008846

PATIENT
  Age: 51 Year
  Sex: Male
  Weight: 79 kg

DRUGS (12)
  1. PEGINTRON [Suspect]
     Indication: CHRONIC HEPATITIS C
     Dosage: 1.52 MICROGRAM PER KILOGRAM, UNK
     Route: 058
     Dates: start: 20120214, end: 20120228
  2. PEGINTRON [Suspect]
     Dosage: 1.27 MICROGRAM PER KILOGRAM, QW
     Route: 058
     Dates: start: 20120306, end: 20120723
  3. REBETOL [Suspect]
     Indication: CHRONIC HEPATITIS C
     Dosage: 800 MG, UNK
     Route: 048
     Dates: start: 20120214, end: 20120301
  4. REBETOL [Suspect]
     Dosage: 600 MG, QD
     Route: 048
     Dates: start: 20120302, end: 20120305
  5. REBETOL [Suspect]
     Dosage: 400MG, QD
     Route: 048
     Dates: start: 20120306, end: 20120723
  6. TELAVIC [Suspect]
     Indication: CHRONIC HEPATITIS C
     Dosage: 2250MG , QD
     Route: 048
     Dates: start: 20120214, end: 20120312
  7. TELAVIC [Suspect]
     Dosage: 1500 MG, QD
     Route: 048
     Dates: start: 20120313, end: 20120507
  8. DOMPERIDONE [Concomitant]
     Indication: PROPHYLAXIS
     Dosage: 30 MG, QD
     Route: 048
     Dates: start: 20120214
  9. LOXOPROFEN [Concomitant]
     Indication: PROPHYLAXIS
     Dosage: 60 MG/DAY, AS NEEDED
     Route: 048
     Dates: start: 20120214
  10. LOXOPROFEN [Concomitant]
     Dosage: 60 MG, QD
     Route: 048
  11. LENDORMIN [Concomitant]
     Indication: PROPHYLAXIS
     Dosage: 0.25 MG/DAY, AS NEEDED
     Route: 048
     Dates: start: 20120214, end: 20120327
  12. GASTER D [Concomitant]
     Indication: PROPHYLAXIS
     Dosage: 40 MG, UNK
     Route: 048
     Dates: start: 20120321, end: 20120507

REACTIONS (1)
  - Erythema [Recovering/Resolving]
